FAERS Safety Report 18297988 (Version 2)
Quarter: 2020Q3

REPORT INFORMATION
  Report Type: Spontaneous
  Country: US (occurrence: US)
  Receive Date: 20200922
  Receipt Date: 20200927
  Transmission Date: 20201103
  Serious: Yes (Other)
  Sender: FDA-Public Use
  Company Number: US-ASTRAZENECA-2020SF19446

PATIENT
  Sex: Female
  Weight: 72.6 kg

DRUGS (9)
  1. FASENRA [Suspect]
     Active Substance: BENRALIZUMAB
     Indication: EOSINOPHIL COUNT INCREASED
     Dosage: EVERY EIGHT WEEKS, 1 INJECTION PER 60 DAYS
     Route: 058
     Dates: start: 202005, end: 202009
  2. FASENRA [Suspect]
     Active Substance: BENRALIZUMAB
     Indication: ASTHMA
     Dosage: EVERY EIGHT WEEKS, 1 INJECTION PER 60 DAYS
     Route: 058
     Dates: start: 202005, end: 202009
  3. FASENRA [Suspect]
     Active Substance: BENRALIZUMAB
     Indication: ASTHMA
     Dosage: FIRST TWO DOSES EVERY FOUR WEEKS
     Route: 058
     Dates: start: 2020
  4. OXYGEN. [Concomitant]
     Active Substance: OXYGEN
  5. PREDNISONE. [Concomitant]
     Active Substance: PREDNISONE
     Indication: INFLAMMATION
  6. FASENRA [Suspect]
     Active Substance: BENRALIZUMAB
     Indication: EOSINOPHIL COUNT INCREASED
     Dosage: FIRST TWO DOSES EVERY FOUR WEEKS
     Route: 058
     Dates: start: 2020
  7. NUCALA [Concomitant]
     Active Substance: MEPOLIZUMAB
  8. SINGULAIR [Concomitant]
     Active Substance: MONTELUKAST SODIUM
  9. CINQUAIR [Concomitant]
     Indication: EOSINOPHIL COUNT INCREASED

REACTIONS (9)
  - Secretion discharge [Recovering/Resolving]
  - Illness [Recovering/Resolving]
  - Cough [Recovering/Resolving]
  - Pharyngeal swelling [Unknown]
  - Wheezing [Recovering/Resolving]
  - Inflammation [Recovering/Resolving]
  - Product dose omission issue [Recovering/Resolving]
  - Dyspnoea [Unknown]
  - Choking [Unknown]
